FAERS Safety Report 20710520 (Version 5)
Quarter: 2023Q4

REPORT INFORMATION
  Report Type: Spontaneous
  Country: US (occurrence: US)
  Receive Date: 20220414
  Receipt Date: 20231228
  Transmission Date: 20240109
  Serious: No
  Sender: FDA-Public Use
  Company Number: US-PFIZER INC-202200483821

PATIENT
  Age: 74 Year
  Sex: Female

DRUGS (1)
  1. IBRANCE [Suspect]
     Active Substance: PALBOCICLIB
     Dosage: ONCE DAILY (FOR 21 DAYS, D-21 Q28 DAYS)
     Route: 048
     Dates: start: 20210429, end: 20210712

REACTIONS (3)
  - Arthritis [Unknown]
  - Limb discomfort [Unknown]
  - Wrong technique in product usage process [Unknown]
